FAERS Safety Report 25519743 (Version 1)
Quarter: 2025Q3

REPORT INFORMATION
  Report Type: Spontaneous
  Country: US (occurrence: US)
  Receive Date: 20250704
  Receipt Date: 20250704
  Transmission Date: 20251021
  Serious: No
  Sender: PFIZER
  Company Number: US-PFIZER INC-202500010141

PATIENT
  Age: 11 Year
  Sex: Male

DRUGS (2)
  1. LITFULO [Suspect]
     Active Substance: RITLECITINIB TOSYLATE
     Indication: Alopecia totalis
     Dosage: 50 MG, 1X/DAY
     Dates: start: 20240523
  2. LITFULO [Suspect]
     Active Substance: RITLECITINIB TOSYLATE
     Dosage: 50 MG, 1X/DAY

REACTIONS (2)
  - Drug ineffective [Unknown]
  - Off label use [Unknown]

NARRATIVE: CASE EVENT DATE: 20240523
